FAERS Safety Report 16116988 (Version 6)
Quarter: 2020Q2

REPORT INFORMATION
  Report Type: Spontaneous
  Country: US (occurrence: US)
  Receive Date: 20190326
  Receipt Date: 20200520
  Transmission Date: 20200713
  Serious: Yes (Hospitalization)
  Sender: FDA-Public Use
  Company Number: US-PFIZER INC-2019122361

PATIENT
  Age: 49 Year
  Sex: Male
  Weight: 102.06 kg

DRUGS (7)
  1. ADVIL LIQUI-GELS [Suspect]
     Active Substance: IBUPROFEN
     Indication: NECK PAIN
     Dosage: UNK
     Dates: start: 201903, end: 201903
  2. NAPROXEN. [Concomitant]
     Active Substance: NAPROXEN
     Indication: PAIN
     Dosage: UNK
  3. TOPCO [Concomitant]
     Indication: PAIN
     Dosage: UNK
  4. ADVIL LIQUI-GELS [Suspect]
     Active Substance: IBUPROFEN
     Indication: MYALGIA
     Dosage: UNK
     Dates: start: 201903, end: 201903
  5. ADVIL LIQUI-GELS [Suspect]
     Active Substance: IBUPROFEN
     Indication: DISCOMFORT
     Dosage: 1 DF, AS NEEDED
     Route: 048
     Dates: start: 20200325
  6. MOTRIN [Concomitant]
     Active Substance: IBUPROFEN
     Indication: PAIN
     Dosage: UNK
  7. NAPROXEN. [Concomitant]
     Active Substance: NAPROXEN
     Indication: PAIN
     Dosage: UNK

REACTIONS (14)
  - Musculoskeletal stiffness [Not Recovered/Not Resolved]
  - Drug ineffective [Unknown]
  - Confusional state [Unknown]
  - Dizziness [Unknown]
  - Dysgeusia [Not Recovered/Not Resolved]
  - Product colour issue [Unknown]
  - Tooth discolouration [Not Recovered/Not Resolved]
  - Somnolence [Recovered/Resolved]
  - Feeling abnormal [Recovered/Resolved]
  - Gingival bleeding [Recovering/Resolving]
  - Pain [Not Recovered/Not Resolved]
  - Discomfort [Unknown]
  - Nuchal rigidity [Not Recovered/Not Resolved]
  - Tooth injury [Recovering/Resolving]

NARRATIVE: CASE EVENT DATE: 2019
